FAERS Safety Report 4966484-5 (Version None)
Quarter: 2006Q2

REPORT INFORMATION
  Report Type: 
  Country: None (occurrence: None)
  Receive Date: 20060407
  Receipt Date: 20060331
  Transmission Date: 20061013
  Serious: Yes (Other)
  Sender: FDA-Public Use
  Company Number: FR-BOEHRINGER INGELHEIM PHARMACEUTICALS, INC.-2006-DE-01705GD

PATIENT
  Age: 43 Year
  Sex: Male

DRUGS (3)
  1. NEVIRAPINE [Suspect]
     Indication: HIV INFECTION
  2. ABACAVIR [Suspect]
     Indication: HIV INFECTION
  3. NELFINAVIR [Suspect]
     Indication: HIV INFECTION

REACTIONS (4)
  - BLOOD HIV RNA INCREASED [None]
  - INSULIN RESISTANCE [None]
  - LIPODYSTROPHY ACQUIRED [None]
  - LIVER FUNCTION TEST ABNORMAL [None]
